FAERS Safety Report 24540847 (Version 1)
Quarter: 2024Q4

REPORT INFORMATION
  Report Type: Spontaneous
  Country: US (occurrence: US)
  Receive Date: 20241023
  Receipt Date: 20241023
  Transmission Date: 20250114
  Serious: Yes (Life-Threatening, Hospitalization, Other)
  Sender: SYMOGEN
  Company Number: US-PARTNER THERAPEUTICS-2024PTX04060

PATIENT
  Age: 58 Year
  Sex: Male

DRUGS (1)
  1. SARGRAMOSTIM [Suspect]
     Active Substance: SARGRAMOSTIM
     Dosage: 100 ?G
     Route: 058
     Dates: start: 20240516, end: 2024

REACTIONS (16)
  - Haemophagocytic lymphohistiocytosis [Not Recovered/Not Resolved]
  - Seizure [Not Recovered/Not Resolved]
  - Facial paralysis [Not Recovered/Not Resolved]
  - Limb discomfort [Not Recovered/Not Resolved]
  - Unresponsive to stimuli [Not Recovered/Not Resolved]
  - Apnoeic attack [Not Recovered/Not Resolved]
  - Dyskinesia [Not Recovered/Not Resolved]
  - Muscle twitching [Not Recovered/Not Resolved]
  - Heart rate increased [Not Recovered/Not Resolved]
  - Coma [Not Recovered/Not Resolved]
  - Hemiparesis [Not Recovered/Not Resolved]
  - Epstein-Barr virus infection reactivation [Not Recovered/Not Resolved]
  - Pneumonia serratia [Not Recovered/Not Resolved]
  - Cystitis [Not Recovered/Not Resolved]
  - Acute kidney injury [Not Recovered/Not Resolved]
  - Acute respiratory failure [Not Recovered/Not Resolved]

NARRATIVE: CASE EVENT DATE: 20240801
